FAERS Safety Report 18641847 (Version 1)
Quarter: 2020Q4

REPORT INFORMATION
  Report Type: Spontaneous
  Country: GB (occurrence: GB)
  Receive Date: 20201221
  Receipt Date: 20201221
  Transmission Date: 20210114
  Serious: Yes (Disabling, Other)
  Sender: FDA-Public Use
  Company Number: GB-MICRO LABS LIMITED-ML2020-03764

PATIENT
  Age: 65 Year
  Sex: Female
  Weight: 103 kg

DRUGS (11)
  1. PANTOPRAZOLE [Concomitant]
     Active Substance: PANTOPRAZOLE
     Dosage: EVERY DAY
     Dates: start: 20201016, end: 20201116
  2. CANDESARTAN. [Concomitant]
     Active Substance: CANDESARTAN
     Dates: start: 20200821, end: 20201116
  3. ACIDEX [Concomitant]
     Active Substance: CALCIUM CARBONATE\SODIUM ALGINATE\SODIUM BICARBONATE
     Dosage: AFTER MEALS AND AT BEDTIME
     Dates: start: 20201116
  4. OMEPRAZOLE. [Concomitant]
     Active Substance: OMEPRAZOLE
     Dates: start: 20200821, end: 20201016
  5. TERBUTALINE [Concomitant]
     Active Substance: TERBUTALINE
     Dosage: UP TO FOUR TIMES A DAY
     Dates: start: 20200924
  6. HYLO-FORTE [Concomitant]
     Active Substance: HYALURONATE SODIUM
     Dosage: IN BOTH EYES
     Dates: start: 20200918, end: 20200921
  7. AMOXICILLIN/CLAVULANIC ACID [Suspect]
     Active Substance: AMOXICILLIN\CLAVULANIC ACID
     Indication: ULCERATIVE KERATITIS
     Route: 048
  8. NUTRITIONAL SUPPLEMENT [Concomitant]
     Active Substance: DIETARY SUPPLEMENT
     Dosage: AS DIRECTED
     Dates: start: 20201109
  9. DOMPERIDONE [Concomitant]
     Active Substance: DOMPERIDONE
     Dosage: UP TO THREE TIMES A DAY
     Dates: start: 20201021
  10. BETAMETHASONE. [Concomitant]
     Active Substance: BETAMETHASONE
     Dosage: APPLY TO BOTH NOSTRILS
     Dates: start: 20200827
  11. CLARITHROMYCIN. [Concomitant]
     Active Substance: CLARITHROMYCIN
     Dates: start: 20200820

REACTIONS (2)
  - Renal impairment [Unknown]
  - Jaundice cholestatic [Recovering/Resolving]

NARRATIVE: CASE EVENT DATE: 20201102
